FAERS Safety Report 20895304 (Version 1)
Quarter: 2022Q2

REPORT INFORMATION
  Report Type: Spontaneous
  Country: US (occurrence: None)
  Receive Date: 20220531
  Receipt Date: 20220531
  Transmission Date: 20220721
  Serious: No
  Sender: FDA-Public Use
  Company Number: None

PATIENT
  Sex: Female

DRUGS (2)
  1. HUMIRA [Suspect]
     Active Substance: ADALIMUMAB
     Indication: Psoriatic arthropathy
     Dosage: OTHER FREQUENCY : EVERY 14 DAYS;?
     Route: 058
  2. MYRBETRIQ [Suspect]
     Active Substance: MIRABEGRON

REACTIONS (4)
  - Pruritus [None]
  - Dizziness [None]
  - Vertigo [None]
  - Hypertension [None]
